FAERS Safety Report 9516324 (Version 1)
Quarter: 2013Q1

REPORT INFORMATION
  Report Type: Spontaneous
  Country: FR (occurrence: None)
  Receive Date: 20130326
  Receipt Date: 20130326
  Transmission Date: 20140127
  Serious: Yes (Life-Threatening)
  Sender: FDA-Public Use
  Company Number: 2013CP000020

PATIENT
  Age: 63 Year
  Sex: Female

DRUGS (10)
  1. PERFALGAN [Suspect]
     Indication: BREAST OPERATION
     Route: 042
     Dates: start: 20120228
  2. DIPRIVAN [Suspect]
     Indication: BREAST OPERATION
     Dates: start: 20120228
  3. SUFENTA (SUFENTANIL CITRATE) [Suspect]
     Indication: BREAST OPERATION
     Dates: start: 20120228
  4. TRACRIUM [Suspect]
     Indication: BREAST OPERATION
     Dates: start: 20120228
  5. MIDAZOLAM HCL [Suspect]
     Indication: BREAST OPERATION
     Dates: start: 20120228
  6. KETAMINE [Suspect]
     Indication: BREAST OPERATION
     Dates: start: 20120228
  7. CEFAZOLINE [Suspect]
     Indication: BREAST OPERATION
  8. ACUPAN [Suspect]
     Indication: BREAST OPERATION
     Dates: start: 20120228
  9. PROFENID (KETOPROFEN) [Suspect]
     Indication: BREAST OPERATION
     Dates: start: 20120228
  10. DROLEPTAN [Suspect]
     Indication: BREAST OPERATION
     Dates: start: 20120228

REACTIONS (2)
  - Shock [None]
  - Rash [None]
